FAERS Safety Report 11119460 (Version 3)
Quarter: 2015Q4

REPORT INFORMATION
  Report Type: Spontaneous
  Country: US (occurrence: US)
  Receive Date: 20150518
  Receipt Date: 20151117
  Transmission Date: 20160304
  Serious: Yes (Death, Hospitalization, Other)
  Sender: FDA-Public Use
  Company Number: US-MERCK-1505USA006611

PATIENT
  Sex: Male
  Weight: 84.81 kg

DRUGS (2)
  1. JANUVIA [Suspect]
     Active Substance: SITAGLIPTIN PHOSPHATE
     Indication: TYPE 2 DIABETES MELLITUS
     Dosage: UNK
     Route: 048
     Dates: start: 200709, end: 201304
  2. JANUMET [Suspect]
     Active Substance: METFORMIN HYDROCHLORIDE\SITAGLIPTIN PHOSPHATE
     Indication: TYPE 2 DIABETES MELLITUS
     Dosage: 50/500 MG, BID
     Route: 048
     Dates: start: 20101026, end: 201305

REACTIONS (12)
  - Metastases to peritoneum [Unknown]
  - Small intestinal obstruction [Recovering/Resolving]
  - Leukocytosis [Unknown]
  - Anaemia [Unknown]
  - Fluid retention [Unknown]
  - Pancreatitis [Unknown]
  - Pancreatic carcinoma metastatic [Fatal]
  - Hypertension [Unknown]
  - Gastritis [Unknown]
  - Varices oesophageal [Unknown]
  - Diverticulum [Unknown]
  - Diabetes mellitus inadequate control [Unknown]

NARRATIVE: CASE EVENT DATE: 2007
